FAERS Safety Report 25987635 (Version 1)
Quarter: 2025Q4

REPORT INFORMATION
  Report Type: Spontaneous
  Country: US (occurrence: US)
  Receive Date: 20251103
  Receipt Date: 20251103
  Transmission Date: 20260118
  Serious: Yes (Hospitalization, Other)
  Sender: STRIDES
  Company Number: None

PATIENT
  Age: 5 Decade
  Sex: Female

DRUGS (20)
  1. VALGANCICLOVIR HYDROCHLORIDE [Suspect]
     Active Substance: VALGANCICLOVIR HYDROCHLORIDE
     Indication: Genital herpes
     Dosage: 0.5 PER DAY, RECEIVED VALGANCICLOVIR 450-900 MG
     Route: 048
  2. VALGANCICLOVIR HYDROCHLORIDE [Suspect]
     Active Substance: VALGANCICLOVIR HYDROCHLORIDE
     Indication: Herpes simplex
  3. ACYCLOVIR [Suspect]
     Active Substance: ACYCLOVIR
     Indication: Genital herpes
     Dosage: 400 MG, 0.5 PER DAY
     Route: 048
  4. ACYCLOVIR [Suspect]
     Active Substance: ACYCLOVIR
     Indication: Herpes simplex
  5. ACYCLOVIR [Suspect]
     Active Substance: ACYCLOVIR
     Indication: Prophylaxis
  6. ACYCLOVIR [Concomitant]
     Active Substance: ACYCLOVIR
     Indication: Genital herpes
     Dosage: UNK, QD, RECEIVED 5-10 MG/KG
     Route: 042
  7. ACYCLOVIR [Concomitant]
     Active Substance: ACYCLOVIR
     Indication: Herpes simplex
  8. DOXORUBICIN [Concomitant]
     Active Substance: DOXORUBICIN
     Indication: Hodgkin^s disease
     Dosage: UNK
     Route: 065
  9. DEXAMETHASONE [Concomitant]
     Active Substance: DEXAMETHASONE
     Indication: Hodgkin^s disease
     Dosage: UNK
     Route: 065
  10. DEXAMETHASONE [Concomitant]
     Active Substance: DEXAMETHASONE
     Indication: Haemophagocytic lymphohistiocytosis
  11. CYCLOPHOSPHAMIDE [Concomitant]
     Active Substance: CYCLOPHOSPHAMIDE
     Indication: Hodgkin^s disease
     Dosage: UNK
     Route: 065
  12. CYCLOPHOSPHAMIDE [Concomitant]
     Active Substance: CYCLOPHOSPHAMIDE
     Indication: Haemophagocytic lymphohistiocytosis
  13. VINBLASTINE [Concomitant]
     Active Substance: VINBLASTINE
     Indication: Hodgkin^s disease
     Dosage: UNK
     Route: 065
  14. VINBLASTINE [Concomitant]
     Active Substance: VINBLASTINE
     Indication: Haemophagocytic lymphohistiocytosis
  15. DACARBAZINE [Concomitant]
     Active Substance: DACARBAZINE
     Indication: Hodgkin^s disease
     Dosage: UNK
     Route: 065
  16. DACARBAZINE [Concomitant]
     Active Substance: DACARBAZINE
     Indication: Haemophagocytic lymphohistiocytosis
  17. CIDOFOVIR [Concomitant]
     Active Substance: CIDOFOVIR
     Indication: Genital herpes
     Dosage: UNK
     Route: 061
  18. DOLUTEGRAVIR [Concomitant]
     Active Substance: DOLUTEGRAVIR
     Indication: HIV infection
     Dosage: UNK
     Route: 065
  19. TENOFOVIR ALAFENAMIDE [Concomitant]
     Active Substance: TENOFOVIR ALAFENAMIDE
     Indication: HIV infection
     Dosage: UNK
     Route: 065
  20. EMTRICITABINE [Concomitant]
     Active Substance: EMTRICITABINE
     Indication: HIV infection
     Dosage: UNK
     Route: 065

REACTIONS (2)
  - Disease progression [Recovered/Resolved]
  - Off label use [Unknown]
